FAERS Safety Report 4372130-4 (Version None)
Quarter: 2004Q2

REPORT INFORMATION
  Report Type: 
  Country: None (occurrence: None)
  Receive Date: 20040607
  Receipt Date: 20040518
  Transmission Date: 20050107
  Serious: Yes (Life-Threatening, Hospitalization)
  Sender: FDA-Public Use
  Company Number: GB-MERCK-0405GBR00148

PATIENT
  Age: 59 Year
  Sex: Female

DRUGS (3)
  1. ALOE [Concomitant]
     Route: 065
  2. HYPERICIN [Suspect]
     Indication: DEPRESSION
     Route: 048
     Dates: start: 20031001, end: 20040416
  3. VIOXX [Suspect]
     Indication: OSTEOARTHRITIS
     Route: 048
     Dates: start: 20031117, end: 20040416

REACTIONS (3)
  - CONVULSION [None]
  - HYPOCALCAEMIA [None]
  - HYPONATRAEMIA [None]
